FAERS Safety Report 9681711 (Version 2)
Quarter: 2013Q4

REPORT INFORMATION
  Report Type: Spontaneous
  Country: US (occurrence: US)
  Receive Date: 20131111
  Receipt Date: 20131219
  Transmission Date: 20140711
  Serious: Yes (Other)
  Sender: FDA-Public Use
  Company Number: US-GLAXOSMITHKLINE-A1048452A

PATIENT
  Age: 78 Year
  Sex: Male

DRUGS (2)
  1. VOTRIENT [Suspect]
     Indication: RENAL CELL CARCINOMA
     Dosage: 200MG FOUR TIMES PER DAY
     Route: 048
     Dates: start: 20130925
  2. NO CONCURRENT MEDICATION [Concomitant]

REACTIONS (1)
  - Nephrolithiasis [Not Recovered/Not Resolved]
